FAERS Safety Report 7575967-3 (Version None)
Quarter: 2011Q2

REPORT INFORMATION
  Report Type: 
  Country: None (occurrence: None)
  Receive Date: 20110628
  Receipt Date: 20110610
  Transmission Date: 20111010
  Serious: Yes (Death, Other)
  Sender: FDA-Public Use
  Company Number: US-BAYER-200940301NA

PATIENT
  Age: 40 Year
  Sex: Male
  Weight: 126.98 kg

DRUGS (19)
  1. VERSED [Concomitant]
     Dosage: UNK
     Route: 042
     Dates: start: 19970616
  2. PROPOFOL [Concomitant]
     Dosage: UNK
     Route: 042
     Dates: start: 19970616
  3. VANCOMYCIN [Concomitant]
     Dosage: UNK
     Route: 042
     Dates: start: 19970616
  4. PROTAMINE SULFATE [Concomitant]
     Dosage: UNK
     Route: 042
     Dates: start: 19970616
  5. ANTI-DIABETICS [Concomitant]
  6. ATENOLOL [Concomitant]
     Dosage: UNK UNK, QD
     Route: 048
  7. FORANE [Concomitant]
     Dosage: INHALATION
     Dates: start: 19970616, end: 19970616
  8. PAVULON [Concomitant]
  9. ASPIRIN [Concomitant]
     Dosage: UNK UNK, PRN
     Route: 048
  10. PRIMACOR [Concomitant]
     Dosage: UNK
     Route: 042
     Dates: start: 19970616, end: 19970616
  11. MONOPRIL [Concomitant]
     Dosage: UNK
     Route: 048
     Dates: start: 19970501
  12. EPINEPHRINE [Concomitant]
     Dosage: UNK
     Route: 042
     Dates: start: 19970616
  13. ANTIHYPERTENSIVES [Concomitant]
  14. LASIX [Concomitant]
  15. HEPARIN [Concomitant]
     Dosage: UNK
     Route: 042
     Dates: start: 19970616
  16. IMDUR [Concomitant]
     Dosage: UNK UNK, QD
     Route: 048
  17. HYDRALAZINE HCL [Concomitant]
     Dosage: UNK UNK, TID
     Route: 048
  18. TRASYLOL [Suspect]
     Indication: CORONARY ARTERY BYPASS
     Dosage: UNK
     Route: 042
     Dates: start: 19970616, end: 19970616
  19. FENTANYL [Concomitant]
     Dosage: UNK
     Route: 042
     Dates: start: 19970616

REACTIONS (13)
  - RENAL INJURY [None]
  - PAIN [None]
  - DEATH [None]
  - ANXIETY [None]
  - RENAL IMPAIRMENT [None]
  - RENAL FAILURE [None]
  - STRESS [None]
  - UNEVALUABLE EVENT [None]
  - FEAR [None]
  - MULTI-ORGAN FAILURE [None]
  - ANHEDONIA [None]
  - INJURY [None]
  - EMOTIONAL DISTRESS [None]
